FAERS Safety Report 8786332 (Version 1)
Quarter: 2012Q4

REPORT INFORMATION
  Report Type: 
  Country: US (occurrence: US)
  Receive Date: 20120914
  Receipt Date: 20120914
  Transmission Date: 20130627
  Serious: No
  Sender: FDA-Public Use
  Company Number: US-ASTRAZENECA-2012SE69593

PATIENT
  Age: 43 Year
  Sex: Female

DRUGS (10)
  1. NEXIUM [Suspect]
     Route: 048
  2. OMEPRAZOLE [Suspect]
     Route: 048
  3. RANITIDINE [Concomitant]
  4. ESTRATEST [Concomitant]
  5. PROTONEX [Concomitant]
  6. CLARITIN [Concomitant]
  7. VENTOLIN [Concomitant]
  8. MOBIC [Concomitant]
  9. AMITRIPTYLINE [Concomitant]
  10. CYMBALTA [Concomitant]

REACTIONS (9)
  - Arthritis [Unknown]
  - Fibromyalgia [Unknown]
  - Gastrooesophageal reflux disease [Unknown]
  - Peptic ulcer [Unknown]
  - Tobacco abuse [Unknown]
  - Haematuria [Unknown]
  - Dyspnoea [Unknown]
  - Obesity [Unknown]
  - Fibrocystic breast disease [Unknown]
